FAERS Safety Report 14813737 (Version 1)
Quarter: 2018Q2

REPORT INFORMATION
  Report Type: Spontaneous
  Country: US (occurrence: US)
  Receive Date: 20180426
  Receipt Date: 20180426
  Transmission Date: 20180711
  Serious: No
  Sender: FDA-Public Use
  Company Number: US-PFIZER INC-2018166233

PATIENT
  Age: 75 Year
  Sex: Female

DRUGS (1)
  1. METHOTREXATE SODIUM. [Suspect]
     Active Substance: METHOTREXATE SODIUM
     Dosage: 25 MG, WEEKLY (25MG/ML INJECT 1CC ONCE WEEKLY)
     Route: 058
     Dates: start: 20161122, end: 20180404

REACTIONS (10)
  - Alopecia [Unknown]
  - Pain [Unknown]
  - Bursitis [Unknown]
  - Drug ineffective [Unknown]
  - White blood cell count decreased [Unknown]
  - Discomfort [Unknown]
  - Skin mass [Unknown]
  - Drug dose omission [Unknown]
  - Oropharyngeal pain [Unknown]
  - Transaminases increased [Unknown]
